FAERS Safety Report 8584134-6 (Version None)
Quarter: 2012Q3

REPORT INFORMATION
  Report Type: 
  Country: None (occurrence: None)
  Receive Date: 20120810
  Receipt Date: 20120802
  Transmission Date: 20120928
  Serious: Yes (Hospitalization)
  Sender: FDA-Public Use
  Company Number: US-009507513-1208USA001887

PATIENT

DRUGS (1)
  1. NUVARING [Suspect]
     Indication: CONTRACEPTION
     Dosage: 0.120MG/DAY OF ETONOGESTREL AND 0. 015 MG/DAY OF ETHINYL ESTRADIOL/21 DAYS
     Route: 067
     Dates: start: 20100101

REACTIONS (1)
  - PULMONARY EMBOLISM [None]
